FAERS Safety Report 7039213-1 (Version None)
Quarter: 2010Q3

REPORT INFORMATION
  Report Type: 
  Country: None (occurrence: None)
  Receive Date: 20100927
  Receipt Date: 20100609
  Transmission Date: 20110219
  Serious: No
  Sender: FDA-Public Use
  Company Number: US-WYE-H15575010

PATIENT
  Age: 75 Year
  Sex: Male

DRUGS (1)
  1. TEMSIROLIMUS (TEMSIROLIMUS, CONCENTRATE FOR 1.1 SOLUTION FOR INFUSION) [Suspect]

REACTIONS (3)
  - AMNESIA [None]
  - ASTHENIA [None]
  - GAIT DISTURBANCE [None]
